FAERS Safety Report 4432460-4 (Version None)
Quarter: 2004Q3

REPORT INFORMATION
  Report Type: 
  Country: None (occurrence: None)
  Receive Date: 20040820
  Receipt Date: 20040804
  Transmission Date: 20050211
  Serious: Yes (Death)
  Sender: FDA-Public Use
  Company Number: 2004SE03254

PATIENT
  Age: 47 Year
  Sex: Female

DRUGS (8)
  1. MARCAINE [Suspect]
     Indication: CERVICOBRACHIAL SYNDROME
     Dosage: 45 MG ONCE
     Dates: start: 20040604, end: 20040604
  2. TRITACE [Concomitant]
  3. LOKREN [Concomitant]
  4. NO MATCH [Concomitant]
  5. CILKANOL [Concomitant]
  6. AULIN [Concomitant]
  7. TRAMAL [Concomitant]
  8. BRUFEN [Concomitant]

REACTIONS (4)
  - CARDIO-RESPIRATORY ARREST [None]
  - INJECTION SITE PAIN [None]
  - LOSS OF CONSCIOUSNESS [None]
  - MUSCLE CRAMP [None]
